FAERS Safety Report 23211449 (Version 2)
Quarter: 2023Q4

REPORT INFORMATION
  Report Type: Spontaneous
  Country: US (occurrence: US)
  Receive Date: 20231121
  Receipt Date: 20231123
  Transmission Date: 20240110
  Serious: No
  Sender: FDA-Public Use
  Company Number: US-002147023-NVSC2023US248108

PATIENT
  Sex: Female

DRUGS (1)
  1. LEQVIO [Suspect]
     Active Substance: INCLISIRAN SODIUM
     Indication: Low density lipoprotein
     Dosage: 284 MG/KG  (INITIAL, 3 MONTHS AND THEN EVERY 6 MONTHS)
     Route: 058
     Dates: start: 20230817

REACTIONS (1)
  - Therapeutic product effect incomplete [Unknown]
